FAERS Safety Report 20814468 (Version 4)
Quarter: 2022Q3

REPORT INFORMATION
  Report Type: Spontaneous
  Country: US (occurrence: US)
  Receive Date: 20220511
  Receipt Date: 20220928
  Transmission Date: 20221027
  Serious: Yes (Other)
  Sender: FDA-Public Use
  Company Number: US-PROPHARMA-76

PATIENT
  Age: 75 Year
  Sex: Female

DRUGS (3)
  1. AYVAKIT [Suspect]
     Active Substance: AVAPRITINIB
     Indication: Haematopoietic neoplasm
     Route: 048
     Dates: start: 20220418
  2. AYVAKIT [Suspect]
     Active Substance: AVAPRITINIB
     Route: 065
     Dates: start: 20220418
  3. KEPPRA [Concomitant]
     Active Substance: LEVETIRACETAM
     Indication: Product used for unknown indication
     Route: 065

REACTIONS (15)
  - Hallucination, visual [Unknown]
  - Visual impairment [Recovered/Resolved]
  - Epistaxis [Unknown]
  - Weight increased [Unknown]
  - Laboratory test abnormal [Unknown]
  - White blood cell count decreased [Unknown]
  - Dizziness [Recovered/Resolved]
  - Constipation [Recovered/Resolved]
  - Fatigue [Unknown]
  - Swelling of eyelid [Unknown]
  - Periorbital swelling [Unknown]
  - Red blood cell count decreased [Unknown]
  - Insomnia [Unknown]
  - Product dose omission in error [Unknown]
  - Joint injury [Unknown]

NARRATIVE: CASE EVENT DATE: 20220501
